FAERS Safety Report 12791741 (Version 1)
Quarter: 2016Q3

REPORT INFORMATION
  Report Type: Spontaneous
  Country: US (occurrence: US)
  Receive Date: 20160929
  Receipt Date: 20160929
  Transmission Date: 20161109
  Serious: Yes (Death, Life-Threatening)
  Sender: FDA-Public Use
  Company Number: None

PATIENT
  Age: 60 Year
  Sex: Female
  Weight: 69 kg

DRUGS (3)
  1. FAMOTIDINE. [Concomitant]
     Active Substance: FAMOTIDINE
  2. FLUCONAZOLE. [Concomitant]
     Active Substance: FLUCONAZOLE
  3. ONDANSETRON [Suspect]
     Active Substance: ONDANSETRON
     Indication: NAUSEA
     Dosage: ?          OTHER FREQUENCY:Q4H PRN;?
     Route: 042
     Dates: start: 20160915, end: 20160921

REACTIONS (5)
  - Torsade de pointes [None]
  - Ventricular tachycardia [None]
  - Electrocardiogram QT prolonged [None]
  - Cardio-respiratory arrest [None]
  - Cardiac failure [None]

NARRATIVE: CASE EVENT DATE: 20160921
